FAERS Safety Report 16852617 (Version 1)
Quarter: 2019Q3

REPORT INFORMATION
  Report Type: Spontaneous
  Country: US (occurrence: US)
  Receive Date: 20190925
  Receipt Date: 20190925
  Transmission Date: 20191005
  Serious: Yes (Other)
  Sender: FDA-Public Use
  Company Number: US-BAYER-2019-173409

PATIENT
  Age: 72 Year
  Sex: Male

DRUGS (2)
  1. WARFARIN [Suspect]
     Active Substance: WARFARIN
  2. ACETYLSALICYLIC ACID (CARDIO) [Suspect]
     Active Substance: ASPIRIN

REACTIONS (5)
  - Labelled drug-drug interaction medication error [None]
  - Gastrointestinal haemorrhage [None]
  - Melaena [None]
  - Blood iron decreased [None]
  - Anaemia [None]
